FAERS Safety Report 23031360 (Version 1)
Quarter: 2023Q4

REPORT INFORMATION
  Report Type: Report from Study
  Country: AR (occurrence: AR)
  Receive Date: 20231005
  Receipt Date: 20231005
  Transmission Date: 20240110
  Serious: Yes (Other)
  Sender: FDA-Public Use
  Company Number: AR-ABBVIE-5433931

PATIENT
  Age: 64 Year
  Sex: Female

DRUGS (1)
  1. HUMIRA [Suspect]
     Active Substance: ADALIMUMAB
     Indication: Psoriatic arthropathy
     Dosage: FORM STRENGTH 40MG
     Route: 058
     Dates: start: 20130101

REACTIONS (4)
  - Pancreatitis [Recovering/Resolving]
  - Abdominal pain [Unknown]
  - Hepatic pain [Unknown]
  - Polyp [Unknown]

NARRATIVE: CASE EVENT DATE: 20230701
